FAERS Safety Report 12173739 (Version 1)
Quarter: 2016Q1

REPORT INFORMATION
  Report Type: Spontaneous
  Country: US (occurrence: None)
  Receive Date: 20160311
  Receipt Date: 20160311
  Transmission Date: 20160526
  Serious: Yes (Disabling, Other)
  Sender: FDA-Public Use
  Company Number: None

PATIENT
  Age: 53 Year
  Sex: Female
  Weight: 72.58 kg

DRUGS (10)
  1. LEVOTHYRAXINE [Concomitant]
  2. DICOLOFENE SOD (VOLTAREN) [Concomitant]
  3. CARBAMAZEPINE (TEGRETAL) [Concomitant]
  4. AUBAGIO [Suspect]
     Active Substance: TERIFLUNOMIDE
     Indication: SECONDARY PROGRESSIVE MULTIPLE SCLEROSIS
     Dosage: 1
     Route: 048
  5. GABAPENTIN. [Concomitant]
     Active Substance: GABAPENTIN
  6. VANLAFAXIN HCL [Concomitant]
  7. CLONAZEPAM. [Concomitant]
     Active Substance: CLONAZEPAM
  8. BACLOFEN. [Concomitant]
     Active Substance: BACLOFEN
  9. ALPRAZOLAM. [Concomitant]
     Active Substance: ALPRAZOLAM
  10. VITAMIN B12 GUMMINES [Concomitant]

REACTIONS (1)
  - Diarrhoea [None]
